FAERS Safety Report 8824076 (Version 3)
Quarter: 2013Q1

REPORT INFORMATION
  Report Type: Spontaneous
  Country: US (occurrence: US)
  Receive Date: 20121003
  Receipt Date: 20130308
  Transmission Date: 20140127
  Serious: Yes (Death)
  Sender: FDA-Public Use
  Company Number: US-AMGEN-USASP2012060620

PATIENT
  Age: 39 Year
  Sex: Male
  Weight: 64.04 kg

DRUGS (3)
  1. PROCRIT [Suspect]
     Indication: NEPHROGENIC ANAEMIA
     Dosage: 40000 UNIT, Q2WK
     Route: 058
     Dates: start: 20120307, end: 20120822
  2. AMLODIPINE [Concomitant]
     Indication: HYPERTENSION
     Dosage: 5 MG, UNK
  3. METOPROLOL SUCCINATE [Concomitant]
     Indication: HYPERTENSION
     Dosage: 50 MG,  UNK 24 HR

REACTIONS (1)
  - Renal failure [Fatal]
